FAERS Safety Report 10391808 (Version 1)
Quarter: 2014Q3

REPORT INFORMATION
  Report Type: Spontaneous
  Country: CN (occurrence: CN)
  Receive Date: 20140819
  Receipt Date: 20140819
  Transmission Date: 20150326
  Serious: Yes (Other)
  Sender: FDA-Public Use
  Company Number: CN-ROCHE-1450927

PATIENT
  Age: 30 Year
  Sex: Male
  Weight: 67 kg

DRUGS (1)
  1. ROCEPHIN [Suspect]
     Active Substance: CEFTRIAXONE SODIUM
     Indication: ANTI-INFECTIVE THERAPY
     Route: 041
     Dates: start: 20140217, end: 20140217

REACTIONS (3)
  - Chest discomfort [Recovering/Resolving]
  - Nasal obstruction [Recovering/Resolving]
  - Cough [Recovering/Resolving]

NARRATIVE: CASE EVENT DATE: 20140217
